FAERS Safety Report 5847366-3 (Version None)
Quarter: 2008Q3

REPORT INFORMATION
  Report Type: 
  Country: None (occurrence: None)
  Receive Date: 20080813
  Receipt Date: 20080801
  Transmission Date: 20090109
  Serious: Yes (Other)
  Sender: FDA-Public Use
  Company Number: GXKR2008GB07225

PATIENT
  Age: 59 Year
  Sex: Female

DRUGS (11)
  1. CEFUROXIME [Suspect]
     Indication: CATARACT OPERATION
     Dosage: 125 MG, INTRAOCULAR INJ
     Dates: start: 20080429, end: 20080429
  2. VOLTAROL OPHTHA (NVO) (DICLOFENAC SODIUM) UNKNOWN [Suspect]
     Dosage: OPTHALMIC
     Route: 047
     Dates: start: 20080429, end: 20080429
  3. EPINEPHRINE [Suspect]
     Indication: CATARACT OPERATION
     Dosage: INTRACAMERAL
     Dates: start: 20080429, end: 20080429
  4. HEALON (HYALURONATE SODIUM) [Suspect]
     Dosage: INTRAOCULAR INJ
     Route: 031
     Dates: start: 20080429, end: 20080429
  5. MINIMS PHENYLEPHRINE (PHENYLEPHRINE HYDROCHLORIDE) 10% [Suspect]
     Indication: MYDRIASIS
     Dosage: OPTHALMIC
     Route: 047
     Dates: start: 20080429, end: 20080429
  6. MINIMS CYCLOPENTOLAT HYDROCHLORID (CYCLOPENTOLATE HYDROCHLORIDE) 1% [Suspect]
     Indication: CYCLOPLEGIA
     Dosage: OPTHALMIC
     Route: 047
     Dates: start: 20080429, end: 20080429
  7. CO-DYDRAMOL (DIHYDROCODEINE BITARTRATE, PARACETAMOL) [Concomitant]
  8. FLUOXETINE [Concomitant]
  9. MAXITROL (DEXAMETHASONE, NEOMYCIN SULFATE, POLYMYXIN B SULFATE) [Concomitant]
  10. POVIDONE IODINE [Concomitant]
  11. WATER FOR INJECTION (WATER FOR INJECTION) [Concomitant]

REACTIONS (3)
  - BLINDNESS [None]
  - CATARACT OPERATION COMPLICATION [None]
  - CORNEAL ABRASION [None]
